FAERS Safety Report 6422699-0 (Version None)
Quarter: 2009Q4

REPORT INFORMATION
  Report Type: 
  Country: None (occurrence: None)
  Receive Date: 20091102
  Receipt Date: 20091023
  Transmission Date: 20100525
  Serious: Yes (Disabling, Other)
  Sender: FDA-Public Use
  Company Number: IT-JNJFOC-20081206788

PATIENT
  Sex: Male

DRUGS (3)
  1. PRIXAR [Suspect]
     Route: 048
  2. PRIXAR [Suspect]
     Indication: BRONCHOPNEUMONIA
     Route: 048
  3. ROCEPHIN [Suspect]
     Indication: PNEUMONITIS
     Route: 065

REACTIONS (11)
  - ARTHRALGIA [None]
  - EYE PAIN [None]
  - EYE SWELLING [None]
  - MOTOR NEURONE DISEASE [None]
  - MUSCLE HYPERTROPHY [None]
  - PAIN IN JAW [None]
  - PHOTOPHOBIA [None]
  - POLYNEUROPATHY [None]
  - SYNOVITIS [None]
  - TENDON DISORDER [None]
  - TENDON PAIN [None]
